FAERS Safety Report 25272276 (Version 2)
Quarter: 2025Q3

REPORT INFORMATION
  Report Type: Report from Study
  Country: US (occurrence: US)
  Receive Date: 20250506
  Receipt Date: 20250905
  Transmission Date: 20251020
  Serious: No
  Sender: TAKEDA
  Company Number: US-TAKEDA-2020TUS053206

PATIENT
  Sex: Female

DRUGS (7)
  1. HUMAN IMMUNOGLOBULIN G\HYALURONIDASE RECOMBINANT HUMAN [Suspect]
     Active Substance: HUMAN IMMUNOGLOBULIN G\HYALURONIDASE (HUMAN RECOMBINANT)
     Indication: Immunodeficiency common variable
     Dosage: 45 GRAM, MONTHLY
  2. HUMAN IMMUNOGLOBULIN G\HYALURONIDASE RECOMBINANT HUMAN [Suspect]
     Active Substance: HUMAN IMMUNOGLOBULIN G\HYALURONIDASE (HUMAN RECOMBINANT)
     Indication: Primary immunodeficiency syndrome
  3. HUMAN IMMUNOGLOBULIN G\HYALURONIDASE RECOMBINANT HUMAN [Suspect]
     Active Substance: HUMAN IMMUNOGLOBULIN G\HYALURONIDASE (HUMAN RECOMBINANT)
  4. HUMAN IMMUNOGLOBULIN G\HYALURONIDASE RECOMBINANT HUMAN [Suspect]
     Active Substance: HUMAN IMMUNOGLOBULIN G\HYALURONIDASE (HUMAN RECOMBINANT)
     Dosage: 40 GRAM, MONTHLY
  5. HUMAN IMMUNOGLOBULIN G\HYALURONIDASE RECOMBINANT HUMAN [Suspect]
     Active Substance: HUMAN IMMUNOGLOBULIN G\HYALURONIDASE (HUMAN RECOMBINANT)
  6. HUMAN IMMUNOGLOBULIN G\HYALURONIDASE RECOMBINANT HUMAN [Suspect]
     Active Substance: HUMAN IMMUNOGLOBULIN G\HYALURONIDASE (HUMAN RECOMBINANT)
     Dosage: 45 GRAM, MONTHLY
  7. INFLUENZA VIRUS VACCINE [Suspect]
     Active Substance: INFLUENZA VIRUS VACCINE
     Indication: Product used for unknown indication

REACTIONS (31)
  - Visual impairment [Unknown]
  - Multiple allergies [Unknown]
  - Nasopharyngitis [Unknown]
  - Presyncope [Unknown]
  - Sinus disorder [Unknown]
  - Tinnitus [Unknown]
  - Allergy to plants [Unknown]
  - Cystitis [Unknown]
  - Renal function test abnormal [Unknown]
  - Sinusitis [Unknown]
  - Arthritis [Unknown]
  - Eye infection [Not Recovered/Not Resolved]
  - Feeling cold [Unknown]
  - Illness [Unknown]
  - Urinary tract infection [Unknown]
  - Meibomian gland dysfunction [Not Recovered/Not Resolved]
  - Dry eye [Not Recovered/Not Resolved]
  - Inappropriate schedule of product administration [Unknown]
  - Chalazion [Not Recovered/Not Resolved]
  - Conjunctival deposit [Unknown]
  - Respiratory disorder [Unknown]
  - Blood glucose increased [Unknown]
  - Anaemia [Unknown]
  - Dizziness [Unknown]
  - Pain in extremity [Unknown]
  - Malaise [Unknown]
  - Dyspnoea [Unknown]
  - Exostosis [Unknown]
  - Pain [Unknown]
  - Insomnia [Unknown]
  - Gait disturbance [Unknown]
